FAERS Safety Report 6038025-5 (Version None)
Quarter: 2009Q1

REPORT INFORMATION
  Report Type: 
  Country: None (occurrence: None)
  Receive Date: 20090115
  Receipt Date: 20090106
  Transmission Date: 20090719
  Serious: Yes (Hospitalization)
  Sender: FDA-Public Use
  Company Number: JP-BRISTOL-MYERS SQUIBB COMPANY-14456347

PATIENT
  Age: 60 Year
  Sex: Male
  Weight: 69 kg

DRUGS (8)
  1. ABILIFY [Suspect]
     Indication: BIPOLAR I DISORDER
     Route: 048
  2. ZYPREXA [Suspect]
     Indication: BIPOLAR I DISORDER
     Dosage: DOSE DECREASED TO 15MG FURTHER DECREASED TO 10MG
     Route: 048
  3. TEGRETOL [Concomitant]
  4. HYPNOTICS NOS [Concomitant]
  5. SEDATIVE [Concomitant]
  6. BENZALIN [Concomitant]
  7. FLURAZEPAM HCL [Concomitant]
  8. VEGETAMIN A [Concomitant]

REACTIONS (2)
  - COMPULSIONS [None]
  - OBSESSIVE THOUGHTS [None]
